FAERS Safety Report 5261890-6 (Version None)
Quarter: 2007Q1

REPORT INFORMATION
  Report Type: 
  Country: None (occurrence: None)
  Receive Date: 20070310
  Receipt Date: 20070228
  Transmission Date: 20070707
  Serious: Yes (Hospitalization, Other)
  Sender: FDA-Public Use
  Company Number: 2006UW10782

PATIENT
  Sex: Male
  Weight: 125 kg

DRUGS (5)
  1. SEROQUEL [Suspect]
     Indication: MENTAL DISORDER
     Route: 048
     Dates: start: 20030101
  2. ZYPREXA [Suspect]
     Dates: start: 20020201, end: 20030101
  3. HALDOL [Concomitant]
  4. PERPHENAZINE [Concomitant]
  5. RISPERDAL [Concomitant]

REACTIONS (2)
  - DIABETES MELLITUS NON-INSULIN-DEPENDENT [None]
  - PANCREATITIS [None]
